FAERS Safety Report 6048375-4 (Version None)
Quarter: 2009Q1

REPORT INFORMATION
  Report Type: 
  Country: None (occurrence: None)
  Receive Date: 20090123
  Receipt Date: 20090121
  Transmission Date: 20090719
  Serious: Yes (Life-Threatening, Hospitalization)
  Sender: FDA-Public Use
  Company Number: FR-WYE-G02976509

PATIENT
  Age: 72 Year
  Sex: Male

DRUGS (9)
  1. TAZOCILLINE [Suspect]
     Indication: INFECTION
     Route: 042
     Dates: start: 20081206, end: 20081206
  2. PREVISCAN [Concomitant]
     Dosage: UNKNOWN
  3. SYMBICORT [Concomitant]
     Dosage: UNKNOWN
  4. ACTONEL [Concomitant]
     Dosage: UNKNOWN
  5. SOLUPRED [Concomitant]
     Dosage: UNKNOWN
  6. ALDACTONE [Concomitant]
     Dosage: UNKNOWN
  7. AVODART [Concomitant]
     Dosage: UNKNOWN
  8. CORDARONE [Concomitant]
     Dosage: UNKNOWN
  9. OROCAL VITAMIN D [Concomitant]
     Dosage: UNKNOWN

REACTIONS (1)
  - CIRCULATORY COLLAPSE [None]
